FAERS Safety Report 17423790 (Version 1)
Quarter: 2020Q1

REPORT INFORMATION
  Report Type: Spontaneous
  Country: ES (occurrence: ES)
  Receive Date: 20200217
  Receipt Date: 20200217
  Transmission Date: 20200409
  Serious: Yes (Other)
  Sender: FDA-Public Use
  Company Number: ES-TEVA-2020-ES-1186544

PATIENT
  Age: 46 Year
  Sex: Male

DRUGS (1)
  1. COPAXONE [Suspect]
     Active Substance: GLATIRAMER ACETATE
     Indication: MULTIPLE SCLEROSIS
     Route: 058
     Dates: start: 200509

REACTIONS (12)
  - Ear discomfort [Recovering/Resolving]
  - Secretion discharge [Recovering/Resolving]
  - Product dose omission [Recovering/Resolving]
  - Chills [Unknown]
  - Pruritus [Recovering/Resolving]
  - Ear infection [Recovering/Resolving]
  - Deafness [Recovering/Resolving]
  - Feeling cold [Recovering/Resolving]
  - Feeling abnormal [Unknown]
  - Tenderness [Recovering/Resolving]
  - Poor quality sleep [Recovering/Resolving]
  - Overdose [Unknown]

NARRATIVE: CASE EVENT DATE: 2019
